FAERS Safety Report 5642486-0 (Version None)
Quarter: 2008Q1

REPORT INFORMATION
  Report Type: 
  Country: None (occurrence: None)
  Receive Date: 20080228
  Receipt Date: 20080225
  Transmission Date: 20080703
  Serious: Yes (Life-Threatening, Hospitalization)
  Sender: FDA-Public Use
  Company Number: DK-JNJFOC-20080205408

PATIENT
  Sex: Male
  Weight: 3.5 kg

DRUGS (2)
  1. TOPAMAX [Suspect]
     Indication: DRUG EXPOSURE DURING PREGNANCY
     Route: 064
  2. RIVOTRIL [Concomitant]
     Indication: DRUG EXPOSURE DURING PREGNANCY
     Route: 064

REACTIONS (2)
  - PULMONARY HYPERTENSION [None]
  - RESPIRATORY FAILURE [None]
